FAERS Safety Report 7962727-4 (Version None)
Quarter: 2011Q4

REPORT INFORMATION
  Report Type: 
  Country: None (occurrence: None)
  Receive Date: 20111207
  Receipt Date: 20111129
  Transmission Date: 20120403
  Serious: Yes (Hospitalization, Disabling)
  Sender: FDA-Public Use
  Company Number: GXKR2011DE003496

PATIENT

DRUGS (5)
  1. IMURAN [Suspect]
     Indication: PEMPHIGOID
     Dosage: 50 MG/DAY
     Route: 048
     Dates: start: 20110410, end: 20110614
  2. ALLOPURINOL [Suspect]
     Indication: HYPERURICAEMIA
     Dosage: 100 MG/DAY
     Route: 048
     Dates: start: 20071002, end: 20110614
  3. EZETIMIBE [Suspect]
     Indication: HYPERCHOLESTEROLAEMIA
     Route: 048
     Dates: start: 20080313, end: 20110614
  4. MICARDIS [Concomitant]
     Indication: HYPERTENSION
     Dosage: 20 MG/DAY
     Route: 048
     Dates: start: 20110322
  5. BISOPROLOL [Concomitant]
     Indication: HYPERTENSION
     Dosage: 10 MG/DAY
     Route: 048
     Dates: start: 20050622

REACTIONS (1)
  - RHABDOMYOLYSIS [None]
